FAERS Safety Report 9318252 (Version 1)
Quarter: 2013Q1

REPORT INFORMATION
  Report Type: Spontaneous
  Country: DE (occurrence: None)
  Receive Date: 20121228
  Receipt Date: 20121228
  Transmission Date: 20140127
  Serious: Yes (Disabling)
  Sender: FDA-Public Use
  Company Number: 2012SA085052

PATIENT
  Age: 81 Year
  Sex: Male
  Weight: 72 kg

DRUGS (3)
  1. MULTAQ (DRONEDARONE) / ORAL / TABLET / 400 MILLIGRAM (S) [Suspect]
     Indication: ATRIAL FIBRILLATION
     Route: 048
     Dates: start: 20101212
  2. ACETYLSALICYLIC ACID [Concomitant]
  3. KALINOR [Concomitant]

REACTIONS (3)
  - Vocal cord disorder [None]
  - Dysphonia [None]
  - Larynx irritation [None]
